FAERS Safety Report 25467519 (Version 1)
Quarter: 2025Q2

REPORT INFORMATION
  Report Type: Spontaneous
  Country: CN (occurrence: CN)
  Receive Date: 20250623
  Receipt Date: 20250623
  Transmission Date: 20250716
  Serious: Yes (Life-Threatening, Hospitalization)
  Sender: MYLAN
  Company Number: CN-MYLANLABS-2025M1052956

PATIENT
  Age: 15 Year
  Sex: Female
  Weight: 33 kg

DRUGS (6)
  1. SERTRALINE [Interacting]
     Active Substance: SERTRALINE HYDROCHLORIDE
     Indication: Depression
     Dosage: 100 MILLIGRAM, QD
  2. SERTRALINE [Interacting]
     Active Substance: SERTRALINE HYDROCHLORIDE
     Dates: start: 20230612, end: 20230612
  3. QUETIAPINE [Interacting]
     Active Substance: QUETIAPINE
     Indication: Depression
     Dosage: 50 MILLIGRAM, QD, EXTENDED-RELEASE FORMULATION
  4. QUETIAPINE [Interacting]
     Active Substance: QUETIAPINE
     Dates: start: 20230612, end: 20230612
  5. LORAZEPAM [Suspect]
     Active Substance: LORAZEPAM
     Indication: Depression
     Dosage: 1 MILLIGRAM, QD
  6. LORAZEPAM [Suspect]
     Active Substance: LORAZEPAM
     Dates: start: 20230612, end: 20230612

REACTIONS (5)
  - Neuroleptic malignant syndrome [Recovering/Resolving]
  - Overdose [Recovering/Resolving]
  - Drug interaction [Recovering/Resolving]
  - Acute kidney injury [Recovering/Resolving]
  - Pneumonia aspiration [Recovering/Resolving]

NARRATIVE: CASE EVENT DATE: 20230601
